FAERS Safety Report 10237950 (Version 1)
Quarter: 2014Q2

REPORT INFORMATION
  Report Type: Spontaneous
  Country: US (occurrence: US)
  Receive Date: 20140616
  Receipt Date: 20140616
  Transmission Date: 20141212
  Serious: Yes (Other)
  Sender: FDA-Public Use
  Company Number: US-SHIRE-US201402963

PATIENT
  Sex: Female

DRUGS (4)
  1. CINRYZE [Suspect]
     Indication: HEREDITARY ANGIOEDEMA
     Dosage: OTHER, MONDAY 1000 UNITS, THURSDAY 1000 UNITS
     Route: 042
     Dates: start: 201401
  2. CINRYZE [Suspect]
     Indication: PROPHYLAXIS
     Dosage: UNK, UNKNOWN
     Route: 042
  3. DANAZOL [Concomitant]
     Indication: PRODUCT USED FOR UNKNOWN INDICATION
     Dosage: UNK, UNKNOWN
     Route: 065
     Dates: start: 201401
  4. DANAZOL [Concomitant]
     Dosage: UNK, UNKNOWN
     Route: 065
     Dates: end: 201401

REACTIONS (1)
  - Hepatic enzyme abnormal [Unknown]
